FAERS Safety Report 20723391 (Version 1)
Quarter: 2022Q2

REPORT INFORMATION
  Report Type: Report from Study
  Country: CN (occurrence: None)
  Receive Date: 20220419
  Receipt Date: 20220419
  Transmission Date: 20220721
  Serious: Yes (Hospitalization)
  Sender: FDA-Public Use
  Company Number: CN-ROCHE-2725053

PATIENT
  Age: 58 Year
  Sex: Male
  Weight: 55.6 kg

DRUGS (41)
  1. FARICIMAB [Suspect]
     Active Substance: FARICIMAB
     Indication: Diabetic retinal oedema
     Dosage: DATE OF MOST RECENT DOSE OF MASKED STUDY DRUG PRIOR TO AE/SAE ONSET 03/NOV/2020 AT 15:12
     Route: 050
     Dates: start: 20200908
  2. PLACEBO [Suspect]
     Active Substance: UNSPECIFIED INGREDIENT
     Indication: Diabetic retinal oedema
     Dosage: DATE OF MOST RECENT DOSE OF MASKED STUDY DRUG PRIOR TO AE/SAE ONSET 03/NOV/2020 AT 15:12
     Route: 050
     Dates: start: 20200908
  3. AFLIBERCEPT [Suspect]
     Active Substance: AFLIBERCEPT
     Indication: Diabetic retinal oedema
     Dosage: DOSE OF LAST FELLOW EYE ANTI-VEGF ADMINISTERED PRIOR TO AE/SAE ONSET 2 MG?DATE OF MOST RECENT DOSE O
     Route: 050
     Dates: start: 20200915
  4. CALCIUM DOBESILATE [Concomitant]
     Active Substance: CALCIUM DOBESILATE
     Indication: Diabetic retinopathy
     Route: 048
     Dates: start: 20200825
  5. HYPROMELLOSES [Concomitant]
     Active Substance: HYPROMELLOSES
     Route: 047
     Dates: start: 20190825
  6. HYPROMELLOSES [Concomitant]
     Active Substance: HYPROMELLOSES
     Route: 047
     Dates: start: 20200825
  7. DEXTRAN 70 [Concomitant]
     Active Substance: DEXTRAN 70
     Route: 047
     Dates: start: 20190825
  8. DEXTRAN 70 [Concomitant]
     Active Substance: DEXTRAN 70
     Route: 047
     Dates: start: 20200825
  9. GLYCERIN [Concomitant]
     Active Substance: GLYCERIN
     Route: 047
     Dates: start: 20190825
  10. GLYCERIN [Concomitant]
     Active Substance: GLYCERIN
     Route: 047
     Dates: start: 20200825
  11. SODIUM HYALURONATE [Concomitant]
     Active Substance: HYALURONATE SODIUM
     Route: 047
     Dates: start: 20181010
  12. VITAMIN A PALMITATE [Concomitant]
     Active Substance: VITAMIN A PALMITATE
     Route: 047
     Dates: start: 20190124
  13. VITAMIN A PALMITATE [Concomitant]
     Active Substance: VITAMIN A PALMITATE
     Route: 047
     Dates: start: 20200124
  14. METFORMIN HYDROCHLORIDE [Concomitant]
     Active Substance: METFORMIN HYDROCHLORIDE
     Indication: Type 2 diabetes mellitus
     Route: 048
     Dates: start: 2015
  15. INSULIN LISPRO [Concomitant]
     Active Substance: INSULIN LISPRO
     Indication: Type 2 diabetes mellitus
     Route: 055
     Dates: start: 2017
  16. SITAGLIPTIN PHOSPHATE [Concomitant]
     Active Substance: SITAGLIPTIN PHOSPHATE
     Indication: Type 2 diabetes mellitus
     Route: 048
     Dates: start: 2017
  17. FINASTERIDE [Concomitant]
     Active Substance: FINASTERIDE
     Route: 048
     Dates: start: 2017
  18. METHYLCOBALAMIN [Concomitant]
     Active Substance: METHYLCOBALAMIN
     Indication: Peripheral vascular disorder
     Route: 048
     Dates: start: 2017
  19. AMOXICILLIN [Concomitant]
     Active Substance: AMOXICILLIN
     Indication: Periodontitis
     Route: 048
     Dates: start: 20201014, end: 20201016
  20. ROXITHROMYCIN [Concomitant]
     Active Substance: ROXITHROMYCIN
     Indication: Periodontitis
     Route: 048
     Dates: start: 20201017, end: 20201018
  21. ZHEN HUANG JIAO NANG [Concomitant]
     Indication: Periodontitis
     Route: 048
     Dates: start: 20201014, end: 20201016
  22. AMIODARONE HYDROCHLORIDE [Concomitant]
     Active Substance: AMIODARONE HYDROCHLORIDE
     Indication: Arrhythmia
     Route: 048
     Dates: start: 20201130
  23. EZETIMIBE [Concomitant]
     Active Substance: EZETIMIBE
     Indication: Hyperlipidaemia
     Route: 048
     Dates: start: 20201130
  24. DAGELIEJINGPIAN [Concomitant]
     Indication: Type 2 diabetes mellitus
     Route: 048
     Dates: start: 20201130
  25. ATORVASTATIN CALCIUM [Concomitant]
     Active Substance: ATORVASTATIN CALCIUM
     Indication: Hyperlipidaemia
     Route: 048
     Dates: start: 20201130
  26. LIFASHABANPIAN [Concomitant]
     Indication: Thrombosis
     Route: 048
     Dates: start: 20201130
  27. METOPROLOL SUCCINATE [Concomitant]
     Active Substance: METOPROLOL SUCCINATE
     Indication: Hypertension
     Route: 048
     Dates: start: 20201130
  28. TAMSULOSIN HYDROCHLORIDE [Concomitant]
     Active Substance: TAMSULOSIN HYDROCHLORIDE
     Route: 048
     Dates: start: 20201130
  29. LANSOPRAZOLE [Concomitant]
     Active Substance: LANSOPRAZOLE
     Indication: Gastritis erosive
     Route: 048
     Dates: start: 20210513, end: 20210706
  30. ITOPRIDE HYDROCHLORIDE [Concomitant]
     Active Substance: ITOPRIDE HYDROCHLORIDE
     Route: 048
     Dates: start: 20210513, end: 20210706
  31. REBAMIPIDE [Concomitant]
     Active Substance: REBAMIPIDE
     Route: 048
     Dates: start: 20210513, end: 20210706
  32. BRINZOLAMIDE [Concomitant]
     Active Substance: BRINZOLAMIDE
     Indication: Ocular hypertension
     Route: 047
     Dates: start: 20210520, end: 20210604
  33. BRINZOLAMIDE [Concomitant]
     Active Substance: BRINZOLAMIDE
     Indication: Intraocular pressure increased
     Route: 047
     Dates: start: 20210617
  34. NORFLOXACIN [Concomitant]
     Active Substance: NORFLOXACIN
     Indication: Gastroenteritis
     Route: 048
     Dates: start: 20210614, end: 20210614
  35. SINOPHARM COVID-19 VACCINE [Concomitant]
     Indication: COVID-19
     Route: 030
     Dates: start: 20210716, end: 20210716
  36. SINOPHARM COVID-19 VACCINE [Concomitant]
     Route: 030
     Dates: start: 20210806, end: 20210806
  37. DIFLUNISAL [Concomitant]
     Active Substance: DIFLUNISAL
     Indication: Arthralgia
     Route: 048
     Dates: start: 20211028, end: 20211101
  38. AMMONIUM GLYCYRRHIZATE\GLYCINE\RACEMETHIONINE [Concomitant]
     Active Substance: AMMONIUM GLYCYRRHIZATE\GLYCINE\RACEMETHIONINE
     Indication: Transaminases increased
     Dosage: GIVEN FOR PROPHYLAXIS: NO
     Route: 048
     Dates: start: 20211028, end: 20211101
  39. MANNITOL [Concomitant]
     Active Substance: MANNITOL
     Indication: Craniocerebral injury
     Route: 042
     Dates: start: 20211206, end: 202112
  40. SOMATOSTATIN [Concomitant]
     Active Substance: SOMATOSTATIN
     Indication: Craniocerebral injury
     Route: 042
     Dates: start: 202112, end: 202112
  41. OMEPRAZOLE SODIUM [Concomitant]
     Active Substance: OMEPRAZOLE SODIUM
     Route: 042
     Dates: start: 202112, end: 202112

REACTIONS (1)
  - Arrhythmia [Not Recovered/Not Resolved]

NARRATIVE: CASE EVENT DATE: 20201101
